FAERS Safety Report 11293544 (Version 1)
Quarter: 2015Q3

REPORT INFORMATION
  Report Type: Spontaneous
  Country: US (occurrence: US)
  Receive Date: 20150722
  Receipt Date: 20150722
  Transmission Date: 20151125
  Serious: No
  Sender: FDA-Public Use
  Company Number: US-ELI_LILLY_AND_COMPANY-US201506008607

PATIENT
  Age: 48 Year

DRUGS (7)
  1. ASPIRIN                            /00002701/ [Concomitant]
     Active Substance: ASPIRIN
  2. TUMS                               /00193601/ [Concomitant]
     Active Substance: CALCIUM CARBONATE\MAGNESIUM CARBONATE\MAGNESIUM TRISILICATE
  3. EFFIENT [Suspect]
     Active Substance: PRASUGREL HYDROCHLORIDE
     Indication: MYOCARDIAL INFARCTION
     Dosage: 10 MG, UNK
     Route: 065
     Dates: start: 20140601, end: 20150611
  4. ATORVASTATIN [Concomitant]
     Active Substance: ATORVASTATIN
  5. FENOFIBRATE. [Concomitant]
     Active Substance: FENOFIBRATE
  6. EFFIENT [Suspect]
     Active Substance: PRASUGREL HYDROCHLORIDE
     Indication: STENT PLACEMENT
  7. PRILOSEC [Concomitant]
     Active Substance: OMEPRAZOLE MAGNESIUM

REACTIONS (7)
  - Dyspepsia [Not Recovered/Not Resolved]
  - Neuropathy peripheral [Unknown]
  - Pain in extremity [Unknown]
  - Intervertebral disc protrusion [Unknown]
  - Muscle spasms [Unknown]
  - Burning sensation [Unknown]
  - Exposure via father [Unknown]

NARRATIVE: CASE EVENT DATE: 201410
